FAERS Safety Report 4290253-5 (Version None)
Quarter: 2004Q1

REPORT INFORMATION
  Report Type: 
  Country: None (occurrence: None)
  Receive Date: 20040126
  Receipt Date: 20030825
  Transmission Date: 20041129
  Serious: No
  Sender: FDA-Public Use
  Company Number: USA030434709

PATIENT
  Age: 81 Year
  Sex: Female
  Weight: 49 kg

DRUGS (5)
  1. FORTEO [Suspect]
     Dates: start: 20030409
  2. LEVOTHROID [Concomitant]
  3. PLAVIX [Concomitant]
  4. ZETIA (AZETIMIBE) [Concomitant]
  5. VIOXX [Concomitant]

REACTIONS (4)
  - ARTHRITIS [None]
  - CONTUSION [None]
  - MYALGIA [None]
  - WEIGHT DECREASED [None]
